FAERS Safety Report 21554898 (Version 1)
Quarter: 2022Q4

REPORT INFORMATION
  Report Type: Spontaneous
  Country: CN (occurrence: CN)
  Receive Date: 20221104
  Receipt Date: 20221104
  Transmission Date: 20230113
  Serious: Yes (Death, Other)
  Sender: FDA-Public Use
  Company Number: CN-PFIZER INC-PV202200093917

PATIENT
  Age: 52 Year
  Sex: Female

DRUGS (3)
  1. PACLITAXEL [Suspect]
     Active Substance: PACLITAXEL
     Indication: Squamous cell carcinoma of the vagina
     Dosage: 210 MG, AT 4 WEEK INTERVAL FOR SIX COURSES
  2. CARBOPLATIN [Suspect]
     Active Substance: CARBOPLATIN
     Indication: Squamous cell carcinoma of the vagina
     Dosage: 450 MG, AT 4 WEEK INTERVAL FOR SIX COURSES
  3. BEVACIZUMAB [Suspect]
     Active Substance: BEVACIZUMAB
     Indication: Squamous cell carcinoma of the vagina
     Dosage: 400 MG, FOR TWO COURSES

REACTIONS (2)
  - Multiple organ dysfunction syndrome [Fatal]
  - Neoplasm progression [Fatal]
